FAERS Safety Report 6294581-3 (Version None)
Quarter: 2009Q3

REPORT INFORMATION
  Report Type: 
  Country: None (occurrence: None)
  Receive Date: 20090730
  Receipt Date: 20090728
  Transmission Date: 20100115
  Serious: Yes (Life-Threatening, Hospitalization)
  Sender: FDA-Public Use
  Company Number: 2009SP013595

PATIENT
  Age: 25 Year
  Sex: Male
  Weight: 64.4 kg

DRUGS (13)
  1. PEG-INTRON [Suspect]
     Indication: HEPATITIS C
     Dosage: 0.40 ML; QW; SC
     Route: 058
     Dates: start: 20090112, end: 20090615
  2. BLINDED SCH 503034 (S-P) (HCV PROTEASE INHIBITOR [Suspect]
     Indication: HEPATITIS C
     Dosage: 12 DF; QD; PO
     Route: 048
     Dates: start: 20090202, end: 20090615
  3. BLINDED SCH 503034 (S-P) (HCV PROTEASE INHIBITOR [Suspect]
  4. BLINDED SCH 503034 (S-P) (HCV PROTEASE INHIBITOR [Suspect]
  5. REBETOL [Suspect]
     Indication: HEPATITIS C
     Dosage: 1000 MG; QD; PO
     Route: 048
     Dates: start: 20090112, end: 20090615
  6. COCAINE [Suspect]
     Dosage: QD; INH
     Route: 055
     Dates: start: 20090518, end: 20090617
  7. HEROIN [Suspect]
     Indication: DRUG USE FOR UNKNOWN INDICATION
     Dosage: QD; INH
     Route: 055
     Dates: start: 20090523, end: 20090606
  8. ALCOHOL [Suspect]
     Indication: DRUG USE FOR UNKNOWN INDICATION
     Dosage: QD; PO
     Route: 048
     Dates: start: 20090101
  9. HYDROCODONE [Suspect]
     Indication: DRUG USE FOR UNKNOWN INDICATION
     Dosage: 2 DF; QW; PO
     Route: 048
     Dates: start: 20090501, end: 20090617
  10. TRAZODONE HCL [Concomitant]
  11. HYDROCORTIZONE [Concomitant]
  12. ACETOMIDE [Concomitant]
  13. TRIAMCINOLONE [Concomitant]

REACTIONS (8)
  - AFFECTIVE DISORDER [None]
  - DRUG DEPENDENCE [None]
  - DRUG TOXICITY [None]
  - INTENTIONAL SELF-INJURY [None]
  - MULTIPLE DRUG OVERDOSE INTENTIONAL [None]
  - PERSONALITY DISORDER [None]
  - SKIN LACERATION [None]
  - SUICIDE ATTEMPT [None]
